FAERS Safety Report 20487081 (Version 1)
Quarter: 2022Q1

REPORT INFORMATION
  Report Type: Spontaneous
  Country: US (occurrence: US)
  Receive Date: 20220217
  Receipt Date: 20220217
  Transmission Date: 20220423
  Serious: No
  Sender: FDA-Public Use
  Company Number: US-JNJFOC-20220140329

PATIENT
  Age: 18 Year
  Sex: Male

DRUGS (1)
  1. TREMFYA [Suspect]
     Active Substance: GUSELKUMAB
     Indication: Psoriasis
     Route: 058
     Dates: start: 20211217

REACTIONS (4)
  - Mood altered [Unknown]
  - Depression [Unknown]
  - Insomnia [Unknown]
  - Affect lability [Unknown]

NARRATIVE: CASE EVENT DATE: 20220119
